FAERS Safety Report 24176444 (Version 3)
Quarter: 2025Q4

REPORT INFORMATION
  Report Type: Spontaneous
  Country: EU (occurrence: EU)
  Receive Date: 20240806
  Receipt Date: 20251208
  Transmission Date: 20260118
  Serious: Yes (Other)
  Sender: AMGEN
  Company Number: EU-Vifor (International) Inc.-VIT-2024-06759

PATIENT
  Age: 73 Year
  Sex: Male
  Weight: 78 kg

DRUGS (18)
  1. TAVNEOS [Suspect]
     Active Substance: AVACOPAN
     Indication: Anti-neutrophil cytoplasmic antibody positive vasculitis
     Dosage: 30 MG, BID
     Route: 048
     Dates: start: 20240106, end: 202501
  2. DARBEPOETIN ALFA [Concomitant]
     Active Substance: DARBEPOETIN ALFA
     Indication: Anaemia
     Dosage: 40 MUG, BIW
     Route: 040
     Dates: start: 20240125, end: 202406
  3. LEVOTHYROXINE [Concomitant]
     Active Substance: LEVOTHYROXINE
     Indication: Hypothyroidism
     Dosage: 100 MUG, OD
     Route: 048
     Dates: start: 20240106
  4. TAMSULOSIN [Concomitant]
     Active Substance: TAMSULOSIN
     Indication: Benign prostatic hyperplasia
     Dosage: 0.4 MG, OD
     Route: 048
     Dates: start: 20240106
  5. FOLIC ACID [Concomitant]
     Active Substance: FOLIC ACID
     Indication: Anti-neutrophil cytoplasmic antibody positive vasculitis
     Dosage: 5 MG, OD
     Route: 048
     Dates: start: 20240106
  6. CHOLECALCIFEROL [Concomitant]
     Active Substance: CHOLECALCIFEROL
     Indication: Anti-neutrophil cytoplasmic antibody positive vasculitis
     Dosage: 1000 MUG, OD
     Route: 048
     Dates: start: 20240106
  7. Pantoprazol A [Concomitant]
     Indication: Gastrointestinal disorder
     Dosage: 20 MG, OD
     Route: 048
     Dates: start: 20240106
  8. COTRIM [Concomitant]
     Active Substance: SULFAMETHOXAZOLE\TRIMETHOPRIM
     Indication: Glucocorticoids abnormal
     Dosage: 800 MG, OD
     Route: 048
     Dates: start: 20240106, end: 202501
  9. CALCIUM [Concomitant]
     Active Substance: CALCIUM
     Indication: Supplementation therapy
     Dosage: 500 MG, OD
     Route: 048
     Dates: start: 20240106, end: 202501
  10. CALCITRIOL [Concomitant]
     Active Substance: CALCITRIOL
     Indication: Supplementation therapy
     Dosage: 0.25 MUG, OD
     Route: 048
     Dates: start: 20240106, end: 202412
  11. PREDNISOLONE [Concomitant]
     Active Substance: PREDNISOLONE
     Indication: Anti-neutrophil cytoplasmic antibody positive vasculitis
     Dosage: 5 MG, OD
     Route: 048
     Dates: start: 20240106
  12. RITUXIMAB [Concomitant]
     Active Substance: RITUXIMAB
     Indication: Anti-neutrophil cytoplasmic antibody positive vasculitis
     Dosage: 1000 MG, OD
     Route: 040
     Dates: start: 20231230, end: 20231230
  13. RITUXIMAB [Concomitant]
     Active Substance: RITUXIMAB
     Dosage: 500 MG (EVERY 6 MONTHS)
     Route: 040
     Dates: start: 20240128
  14. RITUXIMAB [Concomitant]
     Active Substance: RITUXIMAB
     Dosage: 1000 MG, OD
     Route: 040
     Dates: start: 20240109, end: 20240109
  15. RITUXIMAB [Concomitant]
     Active Substance: RITUXIMAB
     Dosage: 500 MG, EVERY 6 MONTHS
     Route: 040
     Dates: start: 20240128
  16. CANDESARTAN [Concomitant]
     Active Substance: CANDESARTAN
     Indication: Hypertension
     Dosage: 4 MG, OD
     Route: 048
     Dates: start: 20240106
  17. ATORVASTATIN [Concomitant]
     Active Substance: ATORVASTATIN
     Indication: Prophylaxis
     Dosage: 20 MG, OD
     Route: 048
     Dates: start: 202412, end: 202501
  18. CYCLOPHOSPHAMIDE [Concomitant]
     Active Substance: CYCLOPHOSPHAMIDE
     Indication: Anti-neutrophil cytoplasmic antibody positive vasculitis
     Dosage: 50 MG, OD
     Route: 040
     Dates: start: 20231228, end: 20240102

REACTIONS (1)
  - Lymphopenia [Recovered/Resolved]

NARRATIVE: CASE EVENT DATE: 20240122
